FAERS Safety Report 5093186-X (Version None)
Quarter: 2006Q3

REPORT INFORMATION
  Report Type: 
  Country: None (occurrence: None)
  Receive Date: 20060828
  Receipt Date: 20060814
  Transmission Date: 20061208
  Serious: Yes (Death)
  Sender: FDA-Public Use
  Company Number: HQWYE632117AUG06

PATIENT
  Age: 65 Year
  Sex: Male
  Weight: 94.89 kg

DRUGS (14)
  1. EFFEXOR XR [Suspect]
     Indication: DEPRESSION
     Dosage: 150 MG 1X PER 1 DAY, ORAL
     Route: 048
  2. ACTOS [Suspect]
     Indication: DIABETES MELLITUS
     Dosage: 45 MG 1X PER 1 DAY, ORAL
     Route: 048
  3. GLUCOPHAGE [Suspect]
     Indication: DIABETES MELLITUS
     Dosage: 1000 MG 2X PER 1 DAY, ORAL
     Route: 048
  4. GLUCOTROL XL [Suspect]
     Indication: DIABETES MELLITUS
     Dosage: 10 MG 1X PER 1 DAY, ORAL
     Route: 048
  5. LANOXIN [Suspect]
     Indication: TACHYARRHYTHMIA
     Dosage: 0.375 MG 1X PER 1 DAY, ORAL
     Route: 048
  6. LANTUS [Suspect]
     Indication: DIABETES MELLITUS
     Dosage: 70 DAILY, SUBCUTANEOUS
     Route: 058
  7. LIPITOR [Suspect]
  8. LORAZEPAM [Suspect]
     Indication: DEPRESSION
     Dosage: 2 MG 1X PER 1 DAY, ORAL
     Route: 048
  9. NIASPAN [Suspect]
     Indication: HIGH DENSITY LIPOPROTEIN DECREASED
     Dosage: 1000 MG ONCE, ORAL
     Route: 048
     Dates: start: 20060711, end: 20060711
  10. NIASPAN [Suspect]
     Indication: HYPERCHOLESTEROLAEMIA
     Dosage: 1000 MG ONCE, ORAL
     Route: 048
     Dates: start: 20060711, end: 20060711
  11. TENORMIN [Suspect]
     Indication: TACHYARRHYTHMIA
     Dosage: 100 MG 1X PER 1 DAY, ORAL
     Route: 048
  12. TRAZODONE HCL [Suspect]
     Indication: DEPRESSION
     Dosage: 200 MG 1X PER 1 DAY, ORAL
     Route: 048
  13. TRICOR [Suspect]
     Indication: DYSLIPIDAEMIA
     Dosage: 160 MG 1X PER 1 DAY, ORAL
     Route: 048
  14. WELLBUTRIN [Suspect]
     Indication: DEPRESSION
     Dosage: 300 MG 1X PER 1 DAY, ORAL
     Route: 048

REACTIONS (5)
  - ALANINE AMINOTRANSFERASE INCREASED [None]
  - BLOOD GLUCOSE INCREASED [None]
  - DRUG INTERACTION [None]
  - INCORRECT DOSE ADMINISTERED [None]
  - MYOCARDIAL INFARCTION [None]
